FAERS Safety Report 18936022 (Version 1)
Quarter: 2021Q1

REPORT INFORMATION
  Report Type: Spontaneous
  Country: IN (occurrence: IN)
  Receive Date: 20210225
  Receipt Date: 20210225
  Transmission Date: 20210420
  Serious: Yes (Other)
  Sender: FDA-Public Use
  Company Number: IN-LUPIN PHARMACEUTICALS INC.-2021-02228

PATIENT
  Age: 9 Year
  Sex: Female

DRUGS (2)
  1. METHYLPREDNISOLONE. [Suspect]
     Active Substance: METHYLPREDNISOLONE
     Indication: CONJUNCTIVAL GRANULOMA
     Dosage: UNK, RECEIVED 3 DOSES
     Route: 042
  2. METHOTREXATE. [Suspect]
     Active Substance: METHOTREXATE
     Indication: CONJUNCTIVAL GRANULOMA
     Dosage: UNK (TAPERED DOSE GIVEN)
     Route: 048

REACTIONS (1)
  - Treatment failure [Unknown]
